FAERS Safety Report 15226245 (Version 1)
Quarter: 2018Q3

REPORT INFORMATION
  Report Type: Spontaneous
  Country: US (occurrence: US)
  Receive Date: 20180706
  Receipt Date: 20180706
  Transmission Date: 20181010
  Serious: No
  Sender: FDA-Public Use
  Company Number: None

PATIENT
  Age: 65 Year
  Sex: Female
  Weight: 99 kg

DRUGS (9)
  1. VITAMIN B12 [Concomitant]
     Active Substance: CYANOCOBALAMIN
  2. MILK THISTLE [Concomitant]
     Active Substance: DIETARY SUPPLEMENT\HERBALS\MILK THISTLE
  3. TUMERIC [Concomitant]
     Active Substance: HERBALS\TURMERIC
  4. HARVONI [Suspect]
     Active Substance: LEDIPASVIR\SOFOSBUVIR
     Indication: HEPATITIS C
     Dosage: ?          QUANTITY:1 TABLET(S);?
     Route: 048
     Dates: start: 20180217, end: 20180517
  5. MULTI VITAMIN [Concomitant]
     Active Substance: VITAMINS
  6. BLUEBERRY EXTRACT [Concomitant]
  7. CURCUMIN [Concomitant]
     Active Substance: CURCUMIN
  8. BIOTIN [Concomitant]
     Active Substance: BIOTIN
  9. COQ10 [Concomitant]
     Active Substance: UBIDECARENONE

REACTIONS (4)
  - Emotional disorder [None]
  - Anxiety [None]
  - Arthralgia [None]
  - Contusion [None]
